FAERS Safety Report 20073540 (Version 1)
Quarter: 2021Q4

REPORT INFORMATION
  Report Type: Spontaneous
  Country: US (occurrence: None)
  Receive Date: 20211112
  Receipt Date: 20211112
  Transmission Date: 20220303
  Serious: No
  Sender: FDA-Public Use
  Company Number: None

PATIENT
  Age: 38 Year
  Sex: Male

DRUGS (1)
  1. OTEZLA [Suspect]
     Active Substance: APREMILAST
     Indication: Psoriasis
     Dosage: OTHER STRENGTH : 10/20/30M;?FREQUENCY : DAILY;?
     Route: 048
     Dates: start: 20211013

REACTIONS (3)
  - Nausea [None]
  - Vomiting projectile [None]
  - Therapy non-responder [None]

NARRATIVE: CASE EVENT DATE: 20211013
